FAERS Safety Report 20871005 (Version 1)
Quarter: 2022Q2

REPORT INFORMATION
  Report Type: Report from Study
  Country: CO (occurrence: CO)
  Receive Date: 20220525
  Receipt Date: 20220525
  Transmission Date: 20220721
  Serious: Yes (Hospitalization, Other)
  Sender: FDA-Public Use
  Company Number: CO-NOVARTISPH-NVSC2022CO117832

PATIENT
  Sex: Female
  Weight: 86 kg

DRUGS (3)
  1. LOSARTAN [Suspect]
     Active Substance: LOSARTAN
     Indication: Hypertension
     Dosage: 50 MG, Q8H ( MORE THAN 15 YEARS AGO)
     Route: 048
  2. HYDROCHLOROTHIAZIDE [Concomitant]
     Active Substance: HYDROCHLOROTHIAZIDE
     Indication: Fluid retention
     Dosage: 5 MG, Q24H (MORE THAN 15 YEARS AGO)
     Route: 048
  3. AMLODIPINE BESYLATE [Concomitant]
     Active Substance: AMLODIPINE BESYLATE
     Indication: Hypertension
     Dosage: 5 MG, Q12H (MORE THAN 15 YEARS AGO)
     Route: 048

REACTIONS (6)
  - Peripheral swelling [Unknown]
  - Deep vein thrombosis [Unknown]
  - Platelet count decreased [Unknown]
  - Thrombotic thrombocytopenic purpura [Unknown]
  - Coagulopathy [Unknown]
  - Off label use [Unknown]
